FAERS Safety Report 9165990 (Version 12)
Quarter: 2015Q2

REPORT INFORMATION
  Report Type: Spontaneous
  Country: US (occurrence: US)
  Receive Date: 20130315
  Receipt Date: 20150407
  Transmission Date: 20150821
  Serious: Yes (Death, Hospitalization, Other)
  Sender: FDA-Public Use
  Company Number: US-GLAXOSMITHKLINE-A1016001A

PATIENT
  Sex: Female

DRUGS (12)
  1. FLOLAN [Suspect]
     Active Substance: EPOPROSTENOL SODIUM
     Dosage: UNK
  2. FLOLAN [Suspect]
     Active Substance: EPOPROSTENOL SODIUM
     Dosage: UNK
  3. COUMADIN [Concomitant]
     Active Substance: WARFARIN SODIUM
  4. FLOLAN [Suspect]
     Active Substance: EPOPROSTENOL SODIUM
     Dosage: UNK
  5. FLOLAN [Suspect]
     Active Substance: EPOPROSTENOL SODIUM
     Dosage: UNK
  6. FLOLAN [Suspect]
     Active Substance: EPOPROSTENOL SODIUM
     Dosage: UNK
  7. FLOLAN [Suspect]
     Active Substance: EPOPROSTENOL SODIUM
     Dosage: 32 NG/KG/MIN CONTINUOUS; CONCENTRATION: 60,0000 NG/ML; PUMP RATE: 63 ML/DAY; VIAL STRENGTH: 1.5 MG
     Route: 042
  8. FLOLAN [Suspect]
     Active Substance: EPOPROSTENOL SODIUM
     Dosage: UNK
  9. FLOLAN [Suspect]
     Active Substance: EPOPROSTENOL SODIUM
     Indication: PULMONARY ARTERIAL HYPERTENSION
     Dosage: 32 NG/KG/MIN, 60000 NG/ML, 63 ML/DAY32 NG/KG/MIN CONTINUOUSLY, CONCENTRATION: 60,000 NG/ML, VIA[...]
     Route: 042
     Dates: start: 20071105
  10. FLOLAN [Suspect]
     Active Substance: EPOPROSTENOL SODIUM
     Dosage: 32NG/KG/MIN CONTINUOUSLY, 1.5MG VIAL, 60,000NG/ML CONC.
  11. REVATIO [Concomitant]
     Active Substance: SILDENAFIL CITRATE
  12. FLOLAN [Suspect]
     Active Substance: EPOPROSTENOL SODIUM
     Dosage: UNK

REACTIONS (16)
  - Pyrexia [Unknown]
  - Hospitalisation [Unknown]
  - Pneumonia [Unknown]
  - Gingival bleeding [Unknown]
  - Coagulopathy [Unknown]
  - Catheter site inflammation [Not Recovered/Not Resolved]
  - Oropharyngeal pain [Unknown]
  - Dyspnoea [Unknown]
  - Application site irritation [Unknown]
  - Catheter site nodule [Unknown]
  - Application site erythema [Unknown]
  - Tooth infection [Unknown]
  - Fall [Unknown]
  - Catheter site erythema [Not Recovered/Not Resolved]
  - Pulmonary embolism [Unknown]
  - Death [Fatal]
